FAERS Safety Report 4400637-X (Version None)
Quarter: 2004Q3

REPORT INFORMATION
  Report Type: 
  Country: None (occurrence: None)
  Receive Date: 20040719
  Receipt Date: 20040517
  Transmission Date: 20050211
  Serious: Yes (Other)
  Sender: FDA-Public Use
  Company Number: PHEH2004US05405

PATIENT
  Age: 77 Year
  Sex: Female

DRUGS (5)
  1. LOTREL [Suspect]
     Indication: HYPERTENSION
     Dosage: 2.5 MG AMLOD/10 MG BENAZ QD
     Route: 048
     Dates: start: 20020409, end: 20040517
  2. EVISTA [Concomitant]
  3. SYNTHROID [Concomitant]
  4. DETROL [Concomitant]
     Indication: POLLAKIURIA
     Dosage: UNK, UNK
     Dates: start: 20020901, end: 20040513
  5. ATIVAN [Concomitant]
     Dosage: 1 MG, QD
     Dates: start: 20010817

REACTIONS (9)
  - DEHYDRATION [None]
  - DIZZINESS [None]
  - DYSGEUSIA [None]
  - HYPOAESTHESIA [None]
  - NAUSEA [None]
  - NOCTURIA [None]
  - POLLAKIURIA [None]
  - RASH [None]
  - SINUSITIS [None]
